FAERS Safety Report 19275923 (Version 1)
Quarter: 2021Q2

REPORT INFORMATION
  Report Type: Spontaneous
  Country: US (occurrence: US)
  Receive Date: 20210519
  Receipt Date: 20210519
  Transmission Date: 20210717
  Serious: No
  Sender: FDA-Public Use
  Company Number: US-MYLANLABS-2021M1026176

PATIENT
  Sex: Male

DRUGS (2)
  1. FUROSEMIDE TABLETS USP [Suspect]
     Active Substance: FUROSEMIDE
     Indication: BLOOD POTASSIUM INCREASED
  2. FUROSEMIDE TABLETS USP [Suspect]
     Active Substance: FUROSEMIDE
     Indication: HYPERTENSION
     Dosage: ONE TABLET ONCE A DAY AT LUNCH TIME
     Route: 048
     Dates: start: 20210427

REACTIONS (2)
  - Abdominal pain upper [Recovering/Resolving]
  - Headache [Recovering/Resolving]

NARRATIVE: CASE EVENT DATE: 20210427
